FAERS Safety Report 12601631 (Version 1)
Quarter: 2016Q3

REPORT INFORMATION
  Report Type: Spontaneous
  Country: US (occurrence: None)
  Receive Date: 20160727
  Receipt Date: 20160727
  Transmission Date: 20161109
  Serious: No
  Sender: FDA-Public Use
  Company Number: None

PATIENT
  Age: 62 Year
  Sex: Female
  Weight: 69.4 kg

DRUGS (19)
  1. BACLOFEN. [Concomitant]
     Active Substance: BACLOFEN
  2. CYCLOBENZAPRINE [Concomitant]
     Active Substance: CYCLOBENZAPRINE
  3. DIVALPROEX [Concomitant]
     Active Substance: DIVALPROEX SODIUM
  4. METFORMIN [Concomitant]
     Active Substance: METFORMIN HYDROCHLORIDE
  5. METOPROLOL TARTRATE. [Concomitant]
     Active Substance: METOPROLOL TARTRATE
  6. VALACYCLOVIR [Suspect]
     Active Substance: VALACYCLOVIR HYDROCHLORIDE
     Indication: HERPES ZOSTER
     Dosage: 1 3 TIMES MOUTH
     Route: 048
     Dates: start: 20160705, end: 20160707
  7. POLYETHYLENE GLYCOL 3350. [Concomitant]
     Active Substance: POLYETHYLENE GLYCOL 3350
  8. GABAPENTIN. [Concomitant]
     Active Substance: GABAPENTIN
  9. 16 FRENCH CATHETER [Concomitant]
  10. COLACE [Concomitant]
     Active Substance: DOCUSATE SODIUM
  11. FISH OIL [Concomitant]
     Active Substance: FISH OIL
  12. ASPIRIN. [Concomitant]
     Active Substance: ASPIRIN
  13. MULTIVITAMIN [Concomitant]
     Active Substance: VITAMINS
  14. CALCIUM + D3 [Concomitant]
     Active Substance: CALCIUM\CHOLECALCIFEROL
  15. ZOLOFT [Concomitant]
     Active Substance: SERTRALINE HYDROCHLORIDE
  16. FUROSEMIDE. [Concomitant]
     Active Substance: FUROSEMIDE
  17. ACETAMINOPHEN. [Concomitant]
     Active Substance: ACETAMINOPHEN
  18. PRAVASTATIN. [Concomitant]
     Active Substance: PRAVASTATIN
  19. SENNOSIDES-DOCUSATE SODIUM [Concomitant]
     Active Substance: DOCUSATE SODIUM\SENNOSIDES

REACTIONS (8)
  - Rash [None]
  - Tremor [None]
  - Paraplegia [None]
  - Aggression [None]
  - Hallucination [None]
  - Chromaturia [None]
  - Abdominal pain upper [None]
  - Confusional state [None]

NARRATIVE: CASE EVENT DATE: 20160705
